FAERS Safety Report 25342191 (Version 2)
Quarter: 2025Q2

REPORT INFORMATION
  Report Type: Spontaneous
  Country: US (occurrence: US)
  Receive Date: 20250521
  Receipt Date: 20250530
  Transmission Date: 20250717
  Serious: Yes (Other)
  Sender: TEVA
  Company Number: US-TEVA-VS-3331623

PATIENT
  Age: 75 Year
  Sex: Female

DRUGS (11)
  1. PREDNISONE [Suspect]
     Active Substance: PREDNISONE
     Indication: Aplasia pure red cell
     Route: 065
  2. SIROLIMUS [Concomitant]
     Active Substance: SIROLIMUS
     Indication: Prophylaxis against graft versus host disease
     Route: 065
  3. FLUDARABINE [Concomitant]
     Active Substance: FLUDARABINE PHOSPHATE
     Indication: Bone marrow conditioning regimen
     Route: 065
  4. ISATUXIMAB [Suspect]
     Active Substance: ISATUXIMAB
     Indication: Aplasia pure red cell
     Route: 042
  5. ISATUXIMAB [Suspect]
     Active Substance: ISATUXIMAB
     Indication: Aplasia pure red cell
     Dosage: FOUR DOSES WEEKLY FOLLOWED BY EVERY 2?WEEKS
     Route: 042
  6. ISATUXIMAB [Suspect]
     Active Substance: ISATUXIMAB
     Indication: Aplasia pure red cell
     Dosage: FOUR DOSES WEEKLY FOLLOWED BY EVERY 2?WEEKS
     Route: 042
  7. CYCLOPHOSPHAMIDE [Concomitant]
     Active Substance: CYCLOPHOSPHAMIDE
     Indication: Bone marrow conditioning regimen
     Route: 065
  8. BORTEZOMIB [Suspect]
     Active Substance: BORTEZOMIB
     Indication: Aplasia pure red cell
     Route: 065
  9. DARBEPOETIN ALFA [Suspect]
     Active Substance: DARBEPOETIN ALFA
     Indication: Aplasia pure red cell
     Route: 065
  10. RITUXIMAB [Suspect]
     Active Substance: RITUXIMAB
     Indication: Aplasia pure red cell
     Route: 065
  11. MYCOPHENOLATE MOFETIL [Concomitant]
     Active Substance: MYCOPHENOLATE MOFETIL
     Indication: Prophylaxis against graft versus host disease
     Route: 065

REACTIONS (3)
  - Neutropenia [Recovered/Resolved]
  - Therapy non-responder [Unknown]
  - Inappropriate schedule of product administration [Unknown]
